FAERS Safety Report 24294123 (Version 1)
Quarter: 2024Q3

REPORT INFORMATION
  Report Type: Spontaneous
  Country: US (occurrence: US)
  Receive Date: 20240906
  Receipt Date: 20240906
  Transmission Date: 20241017
  Serious: No
  Sender: DOMPE FARMACEUTICI
  Company Number: US-FARMAPROD-202308-202405-1657

PATIENT
  Sex: Male

DRUGS (20)
  1. OXERVATE [Suspect]
     Active Substance: CENEGERMIN-BKBJ
     Indication: Neurotrophic keratopathy
     Route: 047
     Dates: start: 20240422
  2. OXERVATE [Suspect]
     Active Substance: CENEGERMIN-BKBJ
  3. FIBERCON [Concomitant]
     Active Substance: CALCIUM POLYCARBOPHIL
  4. GABAPENTIN [Concomitant]
     Active Substance: GABAPENTIN
  5. SOLIFENACIN SUCCINATE [Concomitant]
     Active Substance: SOLIFENACIN SUCCINATE
  6. ATOMOXETINE HYDROCHLORIDE [Concomitant]
     Active Substance: ATOMOXETINE HYDROCHLORIDE
  7. MYRBETRIQ [Concomitant]
     Active Substance: MIRABEGRON
     Dosage: FOR 24 HOURS
  8. TELMISARTAN [Concomitant]
     Active Substance: TELMISARTAN
  9. TADALAFIL [Concomitant]
     Active Substance: TADALAFIL
  10. EZETIMIBE [Concomitant]
     Active Substance: EZETIMIBE
  11. MELOXICAM [Concomitant]
     Active Substance: MELOXICAM
  12. AMLODIPINE BESYLATE [Concomitant]
     Active Substance: AMLODIPINE BESYLATE
  13. CYCLOBENZAPRINE HYDROCHLORIDE [Concomitant]
     Active Substance: CYCLOBENZAPRINE HYDROCHLORIDE
  14. ALPRAZOLAM [Concomitant]
     Active Substance: ALPRAZOLAM
  15. OMEGA-3 ACIDS [Concomitant]
     Active Substance: OMEGA-3 FATTY ACIDS
  16. TESTOSTERONE CYPIONATE [Concomitant]
     Active Substance: TESTOSTERONE CYPIONATE
  17. THIAMINE HYDROCHLORIDE [Concomitant]
     Active Substance: THIAMINE HYDROCHLORIDE
  18. VITAMIN D-400 [Concomitant]
  19. PROBIOTICS NOS [Concomitant]
     Active Substance: PROBIOTICS NOS
  20. MULTIVITAMIN 50 PLUS [Concomitant]

REACTIONS (1)
  - Product administration error [Recovered/Resolved]
